FAERS Safety Report 10548379 (Version 1)
Quarter: 2014Q4

REPORT INFORMATION
  Report Type: Spontaneous
  Country: US (occurrence: None)
  Receive Date: 20141015
  Receipt Date: 20141015
  Transmission Date: 20150529
  Serious: No
  Sender: FDA-Public Use
  Company Number: 2014US003630

PATIENT
  Age: 33 Year
  Sex: Female

DRUGS (1)
  1. ICLUSIG [Suspect]
     Active Substance: PONATINIB
     Indication: CHRONIC MYELOID LEUKAEMIA
     Route: 048

REACTIONS (6)
  - Night sweats [None]
  - Pyrexia [None]
  - Paraesthesia [None]
  - Muscle spasms [None]
  - Oral disorder [None]
  - Hypoaesthesia [None]

NARRATIVE: CASE EVENT DATE: 20140823
